FAERS Safety Report 5294715-3 (Version None)
Quarter: 2007Q2

REPORT INFORMATION
  Report Type: 
  Country: None (occurrence: None)
  Receive Date: 20070409
  Receipt Date: 20070409
  Transmission Date: 20071010
  Serious: Yes (Other)
  Sender: FDA-Public Use
  Company Number: None

PATIENT
  Age: 47 Year
  Sex: Female

DRUGS (1)
  1. ISOVUE-370 [Suspect]
     Dates: start: 20070404, end: 20070404

REACTIONS (3)
  - CYANOSIS [None]
  - PARAESTHESIA [None]
  - PERIPHERAL COLDNESS [None]
